FAERS Safety Report 25923111 (Version 3)
Quarter: 2025Q4

REPORT INFORMATION
  Report Type: Spontaneous
  Country: EU (occurrence: EU)
  Receive Date: 20251015
  Receipt Date: 20251105
  Transmission Date: 20260118
  Serious: Yes (Disabling, Other)
  Sender: SUNOVION
  Company Number: None

PATIENT
  Age: 37 Year
  Sex: Female

DRUGS (16)
  1. ESTRADIOL\NORETHINDRONE ACETATE\RELUGOLIX [Suspect]
     Active Substance: ESTRADIOL\NORETHINDRONE ACETATE\RELUGOLIX
     Indication: Endometriosis
     Dosage: 1 DF
     Route: 048
     Dates: start: 20250116, end: 20250830
  2. RIBOFLAVIN [Concomitant]
     Active Substance: RIBOFLAVIN
     Dosage: UNK
  3. DIAZEPAM [Concomitant]
     Active Substance: DIAZEPAM
     Dosage: 15 MG, QD
  4. Dulcolax [Concomitant]
     Dosage: UNK
  5. TETRACYCLINE [Concomitant]
     Active Substance: TETRACYCLINE
     Indication: Acne
     Dosage: UNK
  6. OTILONIUM BROMIDE [Concomitant]
     Active Substance: OTILONIUM BROMIDE
     Indication: Gastrointestinal pain
     Dosage: UNK
  7. Simalviane [Concomitant]
     Indication: Abdominal pain
     Dosage: UNK
  8. IMITREX [Concomitant]
     Active Substance: SUMATRIPTAN SUCCINATE
     Indication: Migraine
     Dosage: UNK
  9. IMITREX [Concomitant]
     Active Substance: SUMATRIPTAN SUCCINATE
     Indication: Neuralgia
  10. TRAMADOL HYDROCHLORIDE [Concomitant]
     Active Substance: TRAMADOL HYDROCHLORIDE
     Indication: Arthralgia
     Dosage: UNK
  11. ARCOXIA [Concomitant]
     Active Substance: ETORICOXIB
     Indication: Tendon pain
     Dosage: UNK
  12. Dafalgan plus caffeine [Concomitant]
     Dosage: UNK
  13. TOPIRAMATE [Concomitant]
     Active Substance: TOPIRAMATE
     Dosage: 25 MG
  14. EZETIMIBE\ROSUVASTATIN [Concomitant]
     Active Substance: EZETIMIBE\ROSUVASTATIN
     Dosage: 10 MG
  15. EZETIMIBE\ROSUVASTATIN [Concomitant]
     Active Substance: EZETIMIBE\ROSUVASTATIN
     Dosage: 10 MG
  16. DULOXETINE [Concomitant]
     Active Substance: DULOXETINE
     Dosage: 90 MG

REACTIONS (15)
  - Acne [Not Recovered/Not Resolved]
  - Acne cystic [Not Recovered/Not Resolved]
  - Sensory loss [Not Recovered/Not Resolved]
  - Irritable bowel syndrome [Not Recovered/Not Resolved]
  - Tendonitis [Not Recovered/Not Resolved]
  - Syncope [Not Recovered/Not Resolved]
  - Chondropathy [Not Recovered/Not Resolved]
  - Cyst [Not Recovered/Not Resolved]
  - Condition aggravated [Not Recovered/Not Resolved]
  - Osteoarthritis [Not Recovered/Not Resolved]
  - Spinal osteoarthritis [Not Recovered/Not Resolved]
  - Sacral pain [Not Recovered/Not Resolved]
  - Neck pain [Not Recovered/Not Resolved]
  - Pain in extremity [Not Recovered/Not Resolved]
  - Fatigue [Not Recovered/Not Resolved]

NARRATIVE: CASE EVENT DATE: 20250101
